FAERS Safety Report 16587064 (Version 5)
Quarter: 2019Q3

REPORT INFORMATION
  Report Type: Report from Study
  Country: LB (occurrence: LB)
  Receive Date: 20190717
  Receipt Date: 20190829
  Transmission Date: 20191004
  Serious: Yes (Hospitalization)
  Sender: FDA-Public Use
  Company Number: PHHY2019LB164479

PATIENT
  Age: 50 Year
  Sex: Male

DRUGS (2)
  1. FOLIC ACID. [Concomitant]
     Active Substance: FOLIC ACID
     Indication: PRODUCT USED FOR UNKNOWN INDICATION
     Route: 065
  2. JADENU [Suspect]
     Active Substance: DEFERASIROX
     Indication: THALASSAEMIA
     Dosage: 3 DF, QD (3 BOXES/MONTH)
     Route: 048

REACTIONS (10)
  - Bradycardia [Recovered/Resolved]
  - Vomiting [Not Recovered/Not Resolved]
  - Dizziness [Unknown]
  - Pyrexia [Recovered/Resolved]
  - Fall [Unknown]
  - Diarrhoea [Recovered/Resolved]
  - Serum ferritin increased [Recovering/Resolving]
  - Chest pain [Unknown]
  - Blood pressure decreased [Recovered/Resolved]
  - Abdominal infection [Recovered/Resolved]

NARRATIVE: CASE EVENT DATE: 201907
